FAERS Safety Report 10545294 (Version 1)
Quarter: 2014Q4

REPORT INFORMATION
  Report Type: Spontaneous
  Country: FR (occurrence: FR)
  Receive Date: 20141027
  Receipt Date: 20141027
  Transmission Date: 20150529
  Serious: Yes (Hospitalization)
  Sender: FDA-Public Use
  Company Number: PHHY2014FR137295

PATIENT
  Age: 75 Year
  Sex: Male

DRUGS (8)
  1. EXFORGE [Suspect]
     Active Substance: AMLODIPINE BESYLATE\VALSARTAN
     Indication: PRODUCT USED FOR UNKNOWN INDICATION
     Dosage: 1 DF, QD (VALSARTAN 160 MG, AMLODIPINE 10 MG)
     Route: 048
     Dates: end: 20140802
  2. PRAVASTATIN [Suspect]
     Active Substance: PRAVASTATIN\PRAVASTATIN SODIUM
     Indication: PRODUCT USED FOR UNKNOWN INDICATION
     Dosage: 20 MG, QD
     Route: 065
  3. UN-ALFA (ALFACALCIDOL) (1 MICROGRAM) (ALFACALCIDOL) [Suspect]
     Active Substance: ALFACALCIDOL
     Dosage: 1.25 UG, QD
     Route: 065
  4. XATRAL [Concomitant]
     Active Substance: ALFUZOSIN
     Indication: PRODUCT USED FOR UNKNOWN INDICATION
     Dosage: 10 MG, QD
     Route: 048
  5. LEVOTHYROX [Concomitant]
     Active Substance: LEVOTHYROXINE
     Indication: PRODUCT USED FOR UNKNOWN INDICATION
     Dosage: 175 UG, QD
     Route: 048
  6. METFORMIN [Suspect]
     Active Substance: METFORMIN HYDROCHLORIDE
     Indication: PRODUCT USED FOR UNKNOWN INDICATION
     Dosage: 500 MG, BID (IN THE MORNING AND IN THE EVENING)
     Route: 048
     Dates: end: 20140802
  7. UN-ALFA (ALFACALCIDOL) (1 MICROGRAM) (ALFACALCIDOL) [Suspect]
     Active Substance: ALFACALCIDOL
     Dosage: 0.5 UG, QD
     Route: 065
     Dates: start: 20140814
  8. UN-ALFA (ALFACALCIDOL) (1 MICROGRAM) (ALFACALCIDOL) [Suspect]
     Active Substance: ALFACALCIDOL
     Indication: PRODUCT USED FOR UNKNOWN INDICATION
     Dosage: 4 UG, QD
     Route: 048
     Dates: end: 20140802

REACTIONS (2)
  - Renal failure [Recovering/Resolving]
  - Hypercalcaemia [Recovered/Resolved]

NARRATIVE: CASE EVENT DATE: 20140802
